FAERS Safety Report 5902063-0 (Version None)
Quarter: 2008Q3

REPORT INFORMATION
  Report Type: 
  Country: None (occurrence: None)
  Receive Date: 20080929
  Receipt Date: 20080917
  Transmission Date: 20090109
  Serious: Yes (Other)
  Sender: FDA-Public Use
  Company Number: US-PFIZER INC-2008058693

PATIENT
  Sex: Female

DRUGS (2)
  1. NARDIL [Suspect]
  2. NIFEDIPINE [Suspect]

REACTIONS (4)
  - ANAL FISSURE [None]
  - BLOOD PRESSURE DECREASED [None]
  - HEADACHE [None]
  - SYNCOPE [None]
